FAERS Safety Report 12920869 (Version 1)
Quarter: 2016Q4

REPORT INFORMATION
  Report Type: Spontaneous
  Country: US (occurrence: US)
  Receive Date: 20161107
  Receipt Date: 20161107
  Transmission Date: 20170207
  Serious: No
  Sender: FDA-Public Use
  Company Number: US-GILEAD-2016-0241053

PATIENT
  Age: 47 Year
  Sex: Female

DRUGS (7)
  1. EPCLUSA [Suspect]
     Active Substance: SOFOSBUVIR\VELPATASVIR
     Indication: HEPATITIS C
     Dosage: UNK
     Route: 048
     Dates: start: 201610
  2. HYOSCYAMINE. [Concomitant]
     Active Substance: HYOSCYAMINE
  3. ZOFRAN [Concomitant]
     Active Substance: ONDANSETRON HYDROCHLORIDE
  4. LYRICA [Concomitant]
     Active Substance: PREGABALIN
  5. PROTONIX                           /00661201/ [Concomitant]
     Active Substance: OMEPRAZOLE
  6. ADVAIR HFA [Concomitant]
     Active Substance: FLUTICASONE PROPIONATE\SALMETEROL XINAFOATE
  7. SUCRALFATE. [Concomitant]
     Active Substance: SUCRALFATE

REACTIONS (2)
  - Paraesthesia [Unknown]
  - Pain in extremity [Unknown]
